FAERS Safety Report 9341420 (Version 2)
Quarter: 2014Q1

REPORT INFORMATION
  Report Type: Report from Study
  Country: US (occurrence: US)
  Receive Date: 20130611
  Receipt Date: 20140207
  Transmission Date: 20141002
  Serious: Yes (Hospitalization, Other)
  Sender: FDA-Public Use
  Company Number: US-ALEXION PHARMACEUTICALS INC.-A201301335

PATIENT
  Sex: 0

DRUGS (2)
  1. SOLIRIS [Suspect]
     Indication: HAEMOLYTIC URAEMIC SYNDROME
     Dosage: UNK
     Route: 042
     Dates: start: 201010
  2. ANTI HYPERTENSIVES [Concomitant]
     Indication: HYPERTENSION
     Dosage: UNK

REACTIONS (8)
  - Appendicitis perforated [Recovered/Resolved]
  - Confusional state [Recovering/Resolving]
  - Visual impairment [Unknown]
  - Abdominal infection [Unknown]
  - Cardiac disorder [Unknown]
  - Hypertension [Unknown]
  - Sepsis [Unknown]
  - Haemoglobin decreased [Unknown]
